FAERS Safety Report 7065116-2 (Version None)
Quarter: 2010Q4

REPORT INFORMATION
  Report Type: 
  Country: None (occurrence: None)
  Receive Date: 20101027
  Receipt Date: 19930810
  Transmission Date: 20110411
  Serious: Yes (Death, Hospitalization, Disabling)
  Sender: FDA-Public Use
  Company Number: US-ROCHE-930201426001

PATIENT
  Sex: Female
  Weight: 70.1 kg

DRUGS (2)
  1. ROFERON-A [Suspect]
     Route: 065
     Dates: start: 19880728, end: 19890712
  2. INTERFERON ALFA [Suspect]
     Route: 065

REACTIONS (4)
  - COMA [None]
  - DEPRESSION [None]
  - MALIGNANT NEOPLASM PROGRESSION [None]
  - TRANSIENT ISCHAEMIC ATTACK [None]
